FAERS Safety Report 11342523 (Version 1)
Quarter: 2015Q3

REPORT INFORMATION
  Report Type: Spontaneous
  Country: US (occurrence: US)
  Receive Date: 20150805
  Receipt Date: 20150805
  Transmission Date: 20151125
  Serious: No
  Sender: FDA-Public Use
  Company Number: US-TEVA-583578USA

PATIENT
  Sex: Female

DRUGS (4)
  1. PROVIGIL [Suspect]
     Active Substance: MODAFINIL
     Indication: CHRONIC FATIGUE SYNDROME
     Route: 065
  2. NUVIGIL [Suspect]
     Active Substance: ARMODAFINIL
     Indication: CHRONIC FATIGUE SYNDROME
     Route: 065
  3. PROVIGIL [Suspect]
     Active Substance: MODAFINIL
     Indication: HYPERSOMNIA
  4. NUVIGIL [Suspect]
     Active Substance: ARMODAFINIL
     Indication: HYPERSOMNIA

REACTIONS (3)
  - Therapeutic response unexpected [Unknown]
  - Intentional product use issue [Unknown]
  - Cardiac disorder [Unknown]
